FAERS Safety Report 8976998 (Version 1)
Quarter: 2012Q4

REPORT INFORMATION
  Report Type: 
  Country: US (occurrence: US)
  Receive Date: 20121220
  Receipt Date: 20121220
  Transmission Date: 20130627
  Serious: Yes (Hospitalization)
  Sender: FDA-Public Use
  Company Number: US-ELI_LILLY_AND_COMPANY-US201212005182

PATIENT
  Sex: Female

DRUGS (3)
  1. HUMALOG 50% LISPRO, 50% NPL [Suspect]
     Indication: TYPE 2 DIABETES MELLITUS
     Dosage: UNK, bid
  2. HUMALOG 50% LISPRO, 50% NPL [Suspect]
     Dosage: UNK, bid
  3. HUMALOG 50% LISPRO, 50% NPL [Suspect]
     Dosage: UNK, bid

REACTIONS (2)
  - Iron deficiency [Unknown]
  - Visual impairment [Not Recovered/Not Resolved]
